FAERS Safety Report 19941732 (Version 1)
Quarter: 2021Q4

REPORT INFORMATION
  Report Type: Spontaneous
  Country: US (occurrence: US)
  Receive Date: 20211009
  Receipt Date: 20211009
  Transmission Date: 20220304
  Serious: Yes (Other)
  Sender: FDA-Public Use
  Company Number: None

PATIENT
  Age: 60 Year
  Sex: Male

DRUGS (1)
  1. REGEN-COV [Suspect]
     Active Substance: CASIRIVIMAB\IMDEVIMAB

REACTIONS (6)
  - Blood pressure decreased [None]
  - Feeling cold [None]
  - Cold sweat [None]
  - Dizziness [None]
  - Blood pressure orthostatic abnormal [None]
  - Refusal of treatment by patient [None]

NARRATIVE: CASE EVENT DATE: 20211009
